FAERS Safety Report 5632343-8 (Version None)
Quarter: 2008Q1

REPORT INFORMATION
  Report Type: 
  Country: None (occurrence: None)
  Receive Date: 20080220
  Receipt Date: 20080214
  Transmission Date: 20080703
  Serious: Yes (Hospitalization, Other)
  Sender: FDA-Public Use
  Company Number: DE-AVENTIS-200810424DE

PATIENT
  Age: 70 Year
  Sex: Female

DRUGS (24)
  1. CLEXANE [Suspect]
     Indication: THROMBOSIS PROPHYLAXIS
     Route: 058
     Dates: start: 20041012, end: 20041019
  2. PROTHAZIN [Suspect]
     Indication: SEDATION
     Route: 042
     Dates: start: 20041012, end: 20041012
  3. AH 3 N [Suspect]
     Indication: PRURITUS
     Dosage: DOSE: 1-0-1
     Route: 048
     Dates: start: 20041012, end: 20041019
  4. TIMONIL [Suspect]
     Dosage: DOSE: 1-0-1
     Route: 048
     Dates: start: 20041012
  5. BERODUAL INHALATION SOLUTION [Suspect]
     Indication: CHRONIC OBSTRUCTIVE PULMONARY DISEASE
     Dosage: DOSE: 2 PUFFS
     Route: 055
     Dates: start: 20041012
  6. NITROGLYCERIN [Suspect]
     Indication: ANGINA PECTORIS
     Dosage: DOSE: 0-0-0-1
     Route: 048
     Dates: start: 20041013, end: 20041013
  7. TRAMADOL HCL [Suspect]
     Indication: PAIN
     Dates: start: 20041013, end: 20041013
  8. METOCLOPRAMID [Suspect]
     Indication: PAIN
     Dates: start: 20041013, end: 20041013
  9. NOVAMINSULFON [Suspect]
     Indication: PAIN
     Dates: start: 20041013, end: 20041013
  10. MOBIC [Concomitant]
     Route: 048
     Dates: start: 20040601, end: 20041012
  11. MIRTAZAPINE [Concomitant]
     Dosage: DOSE: 1-0-0
     Route: 048
     Dates: start: 20040605, end: 20041012
  12. BELOC                              /00376903/ [Concomitant]
     Indication: HYPERTENSION
     Dosage: DOSE: 1-0-0
     Dates: start: 20020505
  13. NORVASC                            /00972401/ [Concomitant]
     Indication: HYPERTENSION
     Route: 048
     Dates: start: 20020501, end: 20041012
  14. NORVASC                            /00972401/ [Concomitant]
     Route: 048
     Dates: start: 20041016
  15. CIPRAMIL                           /00582602/ [Concomitant]
     Indication: DEPRESSION
     Route: 048
     Dates: start: 20040601
  16. PLAVIX [Concomitant]
     Route: 048
     Dates: start: 20040515
  17. TRIAMPUR COMPOSITUM [Concomitant]
     Dosage: DOSE: 0.5-0-0
     Route: 048
     Dates: start: 20040427
  18. GLUCOSE 5 % INFUSION [Concomitant]
     Dates: start: 20041012, end: 20041014
  19. DELIX                              /00885601/ [Concomitant]
     Indication: HYPERTENSION
     Dosage: DOSE: 2.5-0-2.5
     Dates: start: 20041013, end: 20041015
  20. SORTIS                             /01326101/ [Concomitant]
     Dosage: DOSE: 0-0-0-1
     Route: 048
     Dates: start: 20041015
  21. ZYRTEC [Concomitant]
     Indication: PRURITUS
     Dosage: DOSE: 0-0-1
     Route: 048
     Dates: start: 20041019
  22. ACETAMINOPHEN [Concomitant]
     Indication: HEADACHE
     Route: 048
     Dates: start: 20041020, end: 20041020
  23. MCP DROPS [Concomitant]
     Indication: NAUSEA
     Route: 048
     Dates: start: 20041020, end: 20041020
  24. JONOSTERIL                         /00351401/ [Concomitant]
     Indication: CACHEXIA
     Route: 042
     Dates: start: 20041020, end: 20041020

REACTIONS (10)
  - BLISTER [None]
  - ERYTHEMA [None]
  - LIP EROSION [None]
  - MUCOSAL EROSION [None]
  - OCULAR HYPERAEMIA [None]
  - PAIN OF SKIN [None]
  - PRURITUS [None]
  - PYREXIA [None]
  - SKIN DISORDER [None]
  - STEVENS-JOHNSON SYNDROME [None]
